FAERS Safety Report 23156117 (Version 1)
Quarter: 2023Q4

REPORT INFORMATION
  Report Type: Spontaneous
  Country: KR (occurrence: KR)
  Receive Date: 20231107
  Receipt Date: 20231107
  Transmission Date: 20240109
  Serious: Yes (Death, Hospitalization, Other)
  Sender: FDA-Public Use
  Company Number: KR-009507513-2311KOR001842

PATIENT
  Age: 63 Year
  Sex: Female
  Weight: 54.1 kg

DRUGS (1)
  1. PREVYMIS [Suspect]
     Active Substance: LETERMOVIR
     Indication: Antiviral prophylaxis
     Dosage: ONCE DAILY (QD); STRENGTH: 480 MG
     Route: 048
     Dates: start: 20210708, end: 20210915

REACTIONS (4)
  - Death [Fatal]
  - Pyrexia [Unknown]
  - Malnutrition [Unknown]
  - Dysphagia [Unknown]

NARRATIVE: CASE EVENT DATE: 20211130
